FAERS Safety Report 9058979 (Version 1)
Quarter: 2013Q1

REPORT INFORMATION
  Report Type: Spontaneous
  Country: US (occurrence: US)
  Receive Date: 20130211
  Receipt Date: 20130211
  Transmission Date: 20140127
  Serious: Yes (Other)
  Sender: FDA-Public Use
  Company Number: US-BRISTOL-MYERS SQUIBB COMPANY-16492373

PATIENT
  Age: 6 Decade
  Sex: Female

DRUGS (2)
  1. METFORMIN HCL [Suspect]
  2. VICTOZA [Suspect]

REACTIONS (1)
  - Lactic acidosis [Unknown]
